FAERS Safety Report 4547305-1 (Version None)
Quarter: 2005Q1

REPORT INFORMATION
  Report Type: 
  Country: None (occurrence: None)
  Receive Date: 20050107
  Receipt Date: 20050104
  Transmission Date: 20050727
  Serious: Yes (Hospitalization)
  Sender: FDA-Public Use
  Company Number: PHEH2005US00480

PATIENT
  Age: 40 Year
  Sex: Male

DRUGS (1)
  1. CLOZARIL [Suspect]
     Indication: SCHIZOPHRENIA
     Dosage: 225 MG, QD
     Route: 048
     Dates: start: 20041212, end: 20050104

REACTIONS (5)
  - COUGH [None]
  - LUNG INFILTRATION [None]
  - PNEUMONIA VIRAL [None]
  - PYREXIA [None]
  - WHITE BLOOD CELL COUNT INCREASED [None]
